FAERS Safety Report 17080862 (Version 2)
Quarter: 2019Q4

REPORT INFORMATION
  Report Type: Report from Study
  Country: US (occurrence: US)
  Receive Date: 20191127
  Receipt Date: 20191220
  Transmission Date: 20200122
  Serious: Yes (Other)
  Sender: FDA-Public Use
  Company Number: US-DSJP-DSU-2019-145962

PATIENT

DRUGS (12)
  1. DU-176B [Suspect]
     Active Substance: EDOXABAN TOSYLATE
     Dosage: 19 MG, QD
     Route: 048
     Dates: start: 20191117, end: 20191211
  2. EUCRISA [Concomitant]
     Active Substance: CRISABOROLE
     Indication: ECZEMA
     Dosage: 2 %, PRN
     Route: 061
     Dates: start: 201909
  3. MIRALAX [Concomitant]
     Active Substance: POLYETHYLENE GLYCOL 3350
     Indication: PRODUCT USED FOR UNKNOWN INDICATION
     Dosage: 8.5 MG, PRN
     Route: 048
     Dates: start: 201909, end: 20191215
  4. MULTIVITAMIN                       /00097801/ [Concomitant]
     Active Substance: VITAMINS
     Indication: ANAEMIA
     Dosage: 1 ML, QD
     Route: 048
     Dates: start: 201909, end: 20191017
  5. DERMA SMOOTH [Concomitant]
     Indication: ECZEMA
     Dosage: UNK UNK, PRN
     Route: 061
     Dates: start: 201909
  6. TYLENOL [Concomitant]
     Active Substance: ACETAMINOPHEN
     Indication: PYREXIA
     Dosage: 217.6 G, ONCE EVERY 6HR
     Dates: start: 20190928, end: 20191013
  7. DU-176B [Suspect]
     Active Substance: EDOXABAN TOSYLATE
     Indication: ATRIAL FIBRILLATION
     Dosage: 18 MG, QD
     Route: 048
     Dates: start: 20191017, end: 20191115
  8. DU-176B [Suspect]
     Active Substance: EDOXABAN TOSYLATE
     Dosage: 19 MG, QD
     Route: 048
     Dates: start: 20191115, end: 20191115
  9. CALCITONIN [Concomitant]
     Active Substance: CALCITONIN
     Indication: RED MAN SYNDROME
     Dosage: UNK
     Route: 065
     Dates: start: 20190927, end: 201910
  10. LOVENOX [Concomitant]
     Active Substance: ENOXAPARIN SODIUM
     Indication: EMBOLISM VENOUS
     Dosage: 18 MG, BID
     Route: 058
     Dates: start: 20191010, end: 20191016
  11. DU-176B [Suspect]
     Active Substance: EDOXABAN TOSYLATE
     Dosage: 18 MG, QD
     Route: 048
     Dates: start: 20191115, end: 20191115
  12. UNASYN [Concomitant]
     Active Substance: AMPICILLIN SODIUM\SULBACTAM SODIUM
     Indication: PHARYNGEAL ABSCESS
     Dosage: 1.6 G, ONCE EVERY 6HR
     Route: 042
     Dates: start: 20190928, end: 20191013

REACTIONS (2)
  - Overdose [Recovered/Resolved]
  - Product administration error [Recovered/Resolved]

NARRATIVE: CASE EVENT DATE: 20191115
